FAERS Safety Report 6136926-0 (Version None)
Quarter: 2009Q1

REPORT INFORMATION
  Report Type: 
  Country: None (occurrence: None)
  Receive Date: 20090330
  Receipt Date: 20090304
  Transmission Date: 20090719
  Serious: Yes (Other)
  Sender: FDA-Public Use
  Company Number: DE-PFIZER INC-2009177707

PATIENT

DRUGS (11)
  1. GABAPENTIN [Suspect]
     Indication: NEURALGIA
     Dosage: 1.2 G, 1X/DAY
     Route: 048
     Dates: start: 20081201, end: 20090112
  2. METFORMIN HCL [Suspect]
     Indication: DIABETES MELLITUS
     Dosage: 1 G, 1X/DAY
     Route: 048
     Dates: start: 20090110, end: 20090112
  3. CLEXANE [Concomitant]
     Dosage: 0.6 MG, UNK
  4. CLONIDINE [Concomitant]
     Indication: HYPERTENSION
     Dosage: 150 UG, 1X/DAY
     Route: 048
     Dates: start: 20081201, end: 20090107
  5. DECORTIN [Concomitant]
     Dosage: 10 MG, 1X/DAY
  6. MAGNESIUM [Concomitant]
     Dosage: UNK
  7. METOCLOPRAMIDE [Concomitant]
     Dosage: UNK
  8. METRONIDAZOLE [Concomitant]
     Indication: DIARRHOEA
     Dosage: 1200 MG, 1X/DAY
     Route: 048
     Dates: start: 20081222, end: 20090107
  9. NEXIUM [Concomitant]
     Dosage: 20 MG, 1X/DAY
  10. PARACETAMOL [Concomitant]
     Indication: PAIN
     Dosage: 2 G, 1X/DAY
     Route: 048
     Dates: start: 20081222, end: 20090126
  11. ZOPICLONE [Concomitant]
     Dosage: 7.5 UNK, UNK

REACTIONS (1)
  - AGRANULOCYTOSIS [None]
